FAERS Safety Report 6907245-7 (Version None)
Quarter: 2010Q3

REPORT INFORMATION
  Report Type: 
  Country: None (occurrence: None)
  Receive Date: 20100802
  Receipt Date: 20100721
  Transmission Date: 20110219
  Serious: Yes (Death)
  Sender: FDA-Public Use
  Company Number: UTC-001247

PATIENT
  Age: 63 Year
  Sex: Female

DRUGS (1)
  1. REMODULIN [Suspect]
     Indication: PULMONARY HYPERTENSION
     Dosage: SUBCUTANEOUS
     Route: 058
     Dates: start: 20070101

REACTIONS (1)
  - SUDDEN DEATH [None]
